FAERS Safety Report 10648205 (Version 1)
Quarter: 2014Q4

REPORT INFORMATION
  Report Type: Spontaneous
  Country: US (occurrence: None)
  Receive Date: 20141211
  Receipt Date: 20141211
  Transmission Date: 20150529
  Serious: Yes (Disabling)
  Sender: FDA-Public Use
  Company Number: None

PATIENT
  Age: 79 Year
  Sex: Female
  Weight: 143 kg

DRUGS (1)
  1. NITROFURANTOIN. [Suspect]
     Active Substance: NITROFURANTOIN
     Indication: URINARY TRACT INFECTION
     Dosage: 1 CAPSULE TWICE DAILY TAKEN BY MOUTH
     Route: 048
     Dates: start: 20141204, end: 20141207

REACTIONS (8)
  - Chromaturia [None]
  - Nausea [None]
  - Muscular weakness [None]
  - Abdominal pain [None]
  - Oropharyngeal pain [None]
  - Asthenia [None]
  - Decreased appetite [None]
  - Fatigue [None]

NARRATIVE: CASE EVENT DATE: 20141205
